FAERS Safety Report 5034925-3 (Version None)
Quarter: 2006Q2

REPORT INFORMATION
  Report Type: 
  Country: None (occurrence: None)
  Receive Date: 20060517
  Receipt Date: 20060223
  Transmission Date: 20061013
  Serious: Yes (Hospitalization)
  Sender: FDA-Public Use
  Company Number: HQWYE009027FEB06

PATIENT
  Sex: Female

DRUGS (1)
  1. ALESSE [Suspect]
     Dosage: ORAL
     Route: 047

REACTIONS (1)
  - PULMONARY EMBOLISM [None]
